FAERS Safety Report 6798313-1 (Version None)
Quarter: 2010Q2

REPORT INFORMATION
  Report Type: 
  Country: None (occurrence: None)
  Receive Date: 20100622
  Receipt Date: 20100616
  Transmission Date: 20101027
  Serious: Yes (Life-Threatening, Hospitalization)
  Sender: FDA-Public Use
  Company Number: 2010SP033996

PATIENT
  Age: 57 Year
  Sex: Female

DRUGS (17)
  1. TEMOZOLOMIDE [Suspect]
     Indication: NON-SMALL CELL LUNG CANCER
     Dosage: 125 MG; QD
     Dates: start: 20100225, end: 20100615
  2. SODIUM CHLORIDE [Concomitant]
  3. ACETAMINOPHEN [Concomitant]
  4. MOXIFLOXACIN [Concomitant]
  5. HEPARIN SODIUM [Concomitant]
  6. ASPIRIN [Concomitant]
  7. TYLENOL [Concomitant]
  8. LIPITOR [Concomitant]
  9. VITAMIN B1 TAB [Concomitant]
  10. FOLIC ACID [Concomitant]
  11. MAGNESIUM HYDROXIDE TAB [Concomitant]
  12. PROTONIX [Concomitant]
  13. HEPARIN [Concomitant]
  14. LABETOL HCL [Concomitant]
  15. MULTI-VITAMIN [Concomitant]
  16. AVELOX [Concomitant]
  17. TYLENOL [Concomitant]

REACTIONS (2)
  - LYMPHOPENIA [None]
  - PNEUMONIA [None]
